FAERS Safety Report 6505249-X (Version None)
Quarter: 2009Q4

REPORT INFORMATION
  Report Type: 
  Country: None (occurrence: None)
  Receive Date: 20091201
  Receipt Date: 20090817
  Transmission Date: 20100525
  Serious: Yes (Hospitalization)
  Sender: FDA-Public Use
  Company Number: 2007-163591-NL

PATIENT
  Age: 28 Year
  Sex: Female
  Weight: 120.2 kg

DRUGS (4)
  1. NUVARING [Suspect]
     Indication: CONTRACEPTION
     Dosage: 1 DF;QM;VAG
     Route: 067
     Dates: start: 20040227, end: 20040801
  2. NAPROXEN [Concomitant]
  3. ULTRACET [Concomitant]
  4. DARVOCET [Concomitant]

REACTIONS (6)
  - BREAST DISCHARGE [None]
  - BREAST TENDERNESS [None]
  - DEEP VEIN THROMBOSIS [None]
  - PULMONARY EMBOLISM [None]
  - VAGINAL HAEMORRHAGE [None]
  - VAGINITIS BACTERIAL [None]
